FAERS Safety Report 9778599 (Version 5)
Quarter: 2014Q3

REPORT INFORMATION
  Report Type: Spontaneous
  Country: FR (occurrence: FR)
  Receive Date: 20131223
  Receipt Date: 20140815
  Transmission Date: 20150326
  Serious: Yes (Hospitalization, Disabling)
  Sender: FDA-Public Use
  Company Number: FR-ASTRAZENECA-2013SE91204

PATIENT
  Age: 818 Month
  Sex: Female
  Weight: 86 kg

DRUGS (12)
  1. DOXYCYCLINE. [Suspect]
     Active Substance: DOXYCYCLINE
     Route: 065
     Dates: start: 20131119
  2. LASILIX [Concomitant]
     Active Substance: FUROSEMIDE
  3. CAPRELSA [Suspect]
     Active Substance: VANDETANIB
     Indication: MEDULLARY THYROID CANCER
     Route: 048
     Dates: start: 20140401, end: 20140718
  4. LEVOTHYROX [Concomitant]
     Active Substance: LEVOTHYROXINE
  5. LEVOTHYROX [Concomitant]
     Active Substance: LEVOTHYROXINE
     Dates: start: 201303
  6. CAPRELSA [Suspect]
     Active Substance: VANDETANIB
     Indication: MEDULLARY THYROID CANCER
     Route: 048
     Dates: start: 20130427, end: 20131020
  7. DOXYCYCLINE. [Suspect]
     Active Substance: DOXYCYCLINE
     Route: 065
     Dates: start: 20130812
  8. LEVOTHYROX [Concomitant]
     Active Substance: LEVOTHYROXINE
  9. LEXOMIL [Concomitant]
     Active Substance: BROMAZEPAM
     Dates: start: 201303
  10. LASILIX [Concomitant]
     Active Substance: FUROSEMIDE
     Dates: start: 201303
  11. DOXYCYCLINE. [Suspect]
     Active Substance: DOXYCYCLINE
     Route: 065
     Dates: start: 20131209
  12. LEXOMIL [Concomitant]
     Active Substance: BROMAZEPAM

REACTIONS (2)
  - Folliculitis [Recovered/Resolved]
  - Drug eruption [Not Recovered/Not Resolved]

NARRATIVE: CASE EVENT DATE: 201305
